FAERS Safety Report 19753756 (Version 1)
Quarter: 2021Q3

REPORT INFORMATION
  Report Type: Spontaneous
  Country: US (occurrence: US)
  Receive Date: 20210826
  Receipt Date: 20210826
  Transmission Date: 20211014
  Serious: Yes (Hospitalization, Other)
  Sender: FDA-Public Use
  Company Number: US-ORGANON-O2108USA001666

PATIENT
  Age: 60 Year
  Sex: Female

DRUGS (3)
  1. ZOCOR [Suspect]
     Active Substance: SIMVASTATIN
     Indication: BLOOD CHOLESTEROL INCREASED
     Dosage: 1 PILL/20 MILLIGRAM FOR OVER 15 YEARS
     Route: 048
  2. SIMVASTATIN. [Suspect]
     Active Substance: SIMVASTATIN
     Indication: BLOOD CHOLESTEROL INCREASED
     Dosage: 1 PILL/20 MILLIGRAM
     Route: 048
     Dates: start: 20060713, end: 20060713
  3. ZOCOR [Suspect]
     Active Substance: SIMVASTATIN
     Dosage: 1 PILL/20 MILIGRAM
     Route: 048
     Dates: start: 200607

REACTIONS (2)
  - Transient global amnesia [Recovered/Resolved]
  - Seizure [Recovered/Resolved]

NARRATIVE: CASE EVENT DATE: 20060713
